FAERS Safety Report 11769560 (Version 1)
Quarter: 2015Q4

REPORT INFORMATION
  Report Type: Spontaneous
  Country: US (occurrence: US)
  Receive Date: 20151123
  Receipt Date: 20151123
  Transmission Date: 20160304
  Serious: Yes (Hospitalization, Disabling, Other)
  Sender: FDA-Public Use
  Company Number: US-ELI_LILLY_AND_COMPANY-US201511005642

PATIENT
  Sex: Female

DRUGS (3)
  1. HUMALOG [Suspect]
     Active Substance: INSULIN LISPRO
     Indication: TYPE 2 DIABETES MELLITUS
     Route: 065
  2. LEVEMIR [Concomitant]
     Active Substance: INSULIN DETEMIR
  3. HUMALOG [Suspect]
     Active Substance: INSULIN LISPRO
     Indication: TYPE 2 DIABETES MELLITUS
     Dosage: UNK, PRN
     Route: 065

REACTIONS (13)
  - Blindness [Unknown]
  - Muscle atrophy [Unknown]
  - Drug hypersensitivity [Unknown]
  - Pyrexia [Unknown]
  - Blood glucose abnormal [Unknown]
  - Blood glucose increased [Unknown]
  - Incorrect product storage [Unknown]
  - Seizure [Unknown]
  - Intervertebral disc protrusion [Unknown]
  - Cardiomegaly [Unknown]
  - Fluid retention [Unknown]
  - Arterial occlusive disease [Unknown]
  - Cerebral artery stenosis [Unknown]

NARRATIVE: CASE EVENT DATE: 20151016
